FAERS Safety Report 11858987 (Version 1)
Quarter: 2015Q4

REPORT INFORMATION
  Report Type: Spontaneous
  Country: TN (occurrence: TN)
  Receive Date: 20151222
  Receipt Date: 20151222
  Transmission Date: 20160305
  Serious: Yes (Hospitalization)
  Sender: FDA-Public Use
  Company Number: TN-ROCHE-1679407

PATIENT
  Age: 53 Year
  Sex: Female
  Weight: 29.51 kg

DRUGS (2)
  1. MABTHERA [Suspect]
     Active Substance: RITUXIMAB
     Indication: SJOGREN^S SYNDROME
  2. MABTHERA [Suspect]
     Active Substance: RITUXIMAB
     Indication: RHEUMATOID ARTHRITIS
     Route: 042
     Dates: start: 20141230, end: 20150115

REACTIONS (1)
  - Rectal adenocarcinoma [Unknown]
